FAERS Safety Report 4381742-3 (Version None)
Quarter: 2004Q2

REPORT INFORMATION
  Report Type: 
  Country: None (occurrence: None)
  Receive Date: 20040614
  Receipt Date: 20031008
  Transmission Date: 20050107
  Serious: Yes (Hospitalization)
  Sender: FDA-Public Use
  Company Number: 2003180783US

PATIENT
  Sex: Male

DRUGS (1)
  1. ZYVOX [Suspect]
     Indication: OSTEOMYELITIS
     Dosage: ORAL
     Route: 048

REACTIONS (3)
  - ABDOMINAL DISTENSION [None]
  - ANAEMIA [None]
  - HOT FLUSH [None]
